FAERS Safety Report 10823475 (Version 2)
Quarter: 2018Q1

REPORT INFORMATION
  Report Type: Spontaneous
  Country: IT (occurrence: IT)
  Receive Date: 20150218
  Receipt Date: 20180108
  Transmission Date: 20180508
  Serious: Yes (Hospitalization)
  Sender: FDA-Public Use
  Company Number: IT-FRI-1000074549

PATIENT
  Age: 24 Hour
  Weight: 3.04 kg

DRUGS (1)
  1. NEBIVOLOL HCL UNK [Suspect]
     Active Substance: NEBIVOLOL
     Indication: MATERNAL EXPOSURE TIMING UNSPECIFIED
     Dosage: 5 MG, QD
     Route: 064

REACTIONS (8)
  - Hypoglycaemia [Recovered/Resolved]
  - Prothrombin time prolonged [Recovered/Resolved]
  - Activated partial thromboplastin time prolonged [Recovered/Resolved]
  - Polycythaemia [Recovered/Resolved]
  - Thrombocytopenia [Recovered/Resolved]
  - Foetal exposure during pregnancy [Unknown]
  - Hyponatraemia [Recovered/Resolved]
  - Jaundice [Recovered/Resolved]
